FAERS Safety Report 8211856-9 (Version None)
Quarter: 2012Q1

REPORT INFORMATION
  Report Type: 
  Country: None (occurrence: None)
  Receive Date: 20120315
  Receipt Date: 20120310
  Transmission Date: 20120608
  Serious: Yes (Other)
  Sender: FDA-Public Use
  Company Number: US-BAYER-2012-024528

PATIENT
  Age: 48 Year
  Sex: Female
  Weight: 61 kg

DRUGS (3)
  1. ANTIBIOTICS [Concomitant]
  2. LIDOCAINE HCL [Suspect]
     Indication: BLISTER
     Route: 047
  3. LIDOCAINE HCL [Suspect]

REACTIONS (2)
  - THROAT IRRITATION [None]
  - SUDDEN VISUAL LOSS [None]
